FAERS Safety Report 19894860 (Version 2)
Quarter: 2022Q1

REPORT INFORMATION
  Report Type: Spontaneous
  Country: CA (occurrence: CA)
  Receive Date: 20210929
  Receipt Date: 20220322
  Transmission Date: 20220423
  Serious: Yes (Other)
  Sender: FDA-Public Use
  Company Number: CA-SA-SAC20210927000282

PATIENT
  Age: 46 Year
  Sex: Female

DRUGS (8)
  1. RANITIDINE [Suspect]
     Active Substance: RANITIDINE
     Dosage: 150 MG, BID
  2. FERROUS SULFATE [Suspect]
     Active Substance: FERROUS SULFATE
     Dosage: 300 MG, UNK
  3. LORAZEPAM [Suspect]
     Active Substance: LORAZEPAM
     Dosage: 0.5 MG, QD
  4. PFIZER-BIONTECH COVID-19 VACCINE [Suspect]
     Active Substance: TOZINAMERAN
     Indication: COVID-19 immunisation
     Dosage: 0.3 ML, 1X
  5. OLOPATADINE HYDROCHLORIDE [Suspect]
     Active Substance: OLOPATADINE HYDROCHLORIDE
     Dosage: UNK
  6. VALACYCLOVIR [Suspect]
     Active Substance: VALACYCLOVIR HYDROCHLORIDE
     Dosage: 500 MG, BID
  7. XERESE [Suspect]
     Active Substance: ACYCLOVIR\HYDROCORTISONE
     Dosage: UNK
  8. LEVONORGESTREL [Suspect]
     Active Substance: LEVONORGESTREL
     Dosage: UNK

REACTIONS (8)
  - Inflammation [Not Recovered/Not Resolved]
  - Oedema peripheral [Not Recovered/Not Resolved]
  - Pain [Not Recovered/Not Resolved]
  - Pharyngeal paraesthesia [Not Recovered/Not Resolved]
  - Application site pain [Not Recovered/Not Resolved]
  - Swelling [Not Recovered/Not Resolved]
  - Paraesthesia [Not Recovered/Not Resolved]
  - Immunisation reaction [Not Recovered/Not Resolved]
